FAERS Safety Report 8381260-1 (Version None)
Quarter: 2012Q2

REPORT INFORMATION
  Report Type: 
  Country: None (occurrence: None)
  Receive Date: 20120522
  Receipt Date: 20120508
  Transmission Date: 20120825
  Serious: Yes (Other)
  Sender: FDA-Public Use
  Company Number: JPI-P-015939

PATIENT
  Age: 68 Year
  Sex: Female
  Weight: 61.5 kg

DRUGS (39)
  1. APPLE CIDER VINEGAR [Concomitant]
  2. HYDROCHLOROTHIAZIDE W/OLMESARTAN MEDOXOMIL [Concomitant]
  3. METOPROLOL SUCCINATE [Concomitant]
  4. MODAFINIL [Concomitant]
  5. IODINE [Concomitant]
  6. DIMETHYLGLYCINE [Concomitant]
  7. POST PLATINUM, MAGNESIUM SULFATE, MANNITOL [Concomitant]
  8. PALONOSTERON HYDROCHLORIDE [Concomitant]
  9. XYREM [Suspect]
     Indication: SOMNOLENCE
     Dosage: 4.5 GM (2.25 GM, 2 IN 1 D), ORAL 6 GM, (3 GM, 2 IN 1 D), ORAL
     Route: 048
     Dates: start: 20030213, end: 20030101
  10. XYREM [Suspect]
     Indication: CATAPLEXY
     Dosage: 4.5 GM (2.25 GM, 2 IN 1 D), ORAL 6 GM, (3 GM, 2 IN 1 D), ORAL
     Route: 048
     Dates: start: 20030213, end: 20030101
  11. XYREM [Suspect]
     Indication: SOMNOLENCE
     Dosage: 4.5 GM (2.25 GM, 2 IN 1 D), ORAL 6 GM, (3 GM, 2 IN 1 D), ORAL
     Route: 048
     Dates: start: 20030101, end: 20030101
  12. XYREM [Suspect]
     Indication: CATAPLEXY
     Dosage: 4.5 GM (2.25 GM, 2 IN 1 D), ORAL 6 GM, (3 GM, 2 IN 1 D), ORAL
     Route: 048
     Dates: start: 20030101, end: 20030101
  13. XYREM [Suspect]
     Indication: SOMNOLENCE
     Dosage: 4.5 GM (2.25 GM, 2 IN 1 D), ORAL 6 GM, (3 GM, 2 IN 1 D), ORAL
     Route: 048
     Dates: start: 20030527
  14. XYREM [Suspect]
     Indication: CATAPLEXY
     Dosage: 4.5 GM (2.25 GM, 2 IN 1 D), ORAL 6 GM, (3 GM, 2 IN 1 D), ORAL
     Route: 048
     Dates: start: 20030527
  15. NALTREXONE HYDROCHLORIDE [Concomitant]
  16. BENZONATATE [Concomitant]
  17. CALCIFEROL [Concomitant]
  18. DEXAMETHASONE [Concomitant]
  19. CISPLATIN W/MANNITOL [Concomitant]
  20. ONDANSETRON [Concomitant]
  21. ALPRAZOLAM [Concomitant]
  22. AMLODIPINE BESYLATE AND BENAZEPRIL HCL [Concomitant]
  23. NIACIN [Concomitant]
  24. METOCLOPRAMIDE [Concomitant]
  25. PAROXETINE HCL [Concomitant]
  26. AZITHROMYCIN [Suspect]
     Indication: PRODUCT USED FOR UNKNOWN INDICATION
     Dosage: 500 MG (500 MG, 1 IN 1 D) 250 MG (250 MG, 1 IN 1 D)
  27. PROCHLORPERAZINE [Concomitant]
  28. MELATONIN [Concomitant]
  29. BENFOTIAMINE [Concomitant]
  30. THIAMINE [Concomitant]
  31. GEMCITABINE [Concomitant]
  32. ASCORBIC ACID [Concomitant]
  33. TOCOPHEROL CONCENTRATE CAP [Concomitant]
  34. GLYBURIDE W/METFORMIN HYDROCHLORID [Concomitant]
  35. IRVINGIA [Concomitant]
  36. FAMOTIDINE [Concomitant]
  37. DEHYDROEPIANDROSTERONE [Concomitant]
  38. FISH OIL [Concomitant]
  39. FOSAPERPITANT DIMEGLUMINE [Concomitant]

REACTIONS (6)
  - CONDITION AGGRAVATED [None]
  - UPPER-AIRWAY COUGH SYNDROME [None]
  - BLADDER CANCER [None]
  - NASAL CONGESTION [None]
  - CATAPLEXY [None]
  - NASOPHARYNGITIS [None]
